FAERS Safety Report 5750682-7 (Version None)
Quarter: 2008Q2

REPORT INFORMATION
  Report Type: 
  Country: None (occurrence: None)
  Receive Date: 20080528
  Receipt Date: 20080519
  Transmission Date: 20081010
  Serious: Yes (Other)
  Sender: FDA-Public Use
  Company Number: US-JNJFOC-20070601937

PATIENT
  Sex: Male
  Weight: 67.13 kg

DRUGS (6)
  1. DURAGESIC-100 [Suspect]
     Indication: PAIN
     Dosage: 100 UG/HR AND 50 UG/HR PATCHES
     Route: 062
  2. OXYCODONE HCL [Concomitant]
     Indication: PAIN
     Route: 048
  3. ATENOLOL [Concomitant]
     Route: 048
  4. ADVAIR DISKUS 100/50 [Concomitant]
     Dosage: 250/50
     Route: 055
  5. URELLE [Concomitant]
     Indication: BLADDER CANCER
     Route: 048
  6. OMEPRAZOLE [Concomitant]
     Dosage: AS NEEDED
     Route: 048

REACTIONS (10)
  - APPLICATION SITE SCAR [None]
  - APPLICATION SITE ULCER [None]
  - BLOOD CHOLESTEROL INCREASED [None]
  - DENTAL CARIES [None]
  - DEPRESSION [None]
  - INCORRECT DRUG ADMINISTRATION DURATION [None]
  - PAIN [None]
  - SPEECH DISORDER [None]
  - TOOTH LOSS [None]
  - WRONG TECHNIQUE IN DRUG USAGE PROCESS [None]
